FAERS Safety Report 8302318-9 (Version None)
Quarter: 2012Q2

REPORT INFORMATION
  Report Type: 
  Country: None (occurrence: None)
  Receive Date: 20120420
  Receipt Date: 20120411
  Transmission Date: 20120825
  Serious: Yes (Hospitalization)
  Sender: FDA-Public Use
  Company Number: US-JNJFOC-20120406604

PATIENT
  Sex: Male
  Weight: 24.5 kg

DRUGS (3)
  1. HUMIRA [Concomitant]
     Dates: start: 20080319
  2. IMODIUM [Concomitant]
     Indication: PRODUCT USED FOR UNKNOWN INDICATION
  3. REMICADE [Suspect]
     Indication: INFLAMMATORY BOWEL DISEASE
     Route: 042
     Dates: start: 20050921

REACTIONS (1)
  - ILEOSTOMY CLOSURE [None]
